FAERS Safety Report 8886221 (Version 1)
Quarter: 2012Q4

REPORT INFORMATION
  Report Type: 
  Country: DE (occurrence: DE)
  Receive Date: 20121105
  Receipt Date: 20121105
  Transmission Date: 20130627
  Serious: Yes (Death, Hospitalization)
  Sender: FDA-Public Use
  Company Number: DE-JNJFOC-20121015984

PATIENT

DRUGS (228)
  1. TRAMADOL HYDROCHLORIDE [Suspect]
     Indication: DRUG ABUSE
     Route: 065
  2. TRAMADOL HYDROCHLORIDE [Suspect]
     Indication: PRODUCT USED FOR UNKNOWN INDICATION
     Route: 065
  3. FENTANYL [Suspect]
     Indication: DRUG ABUSE
     Route: 065
  4. FENTANYL [Suspect]
     Indication: PRODUCT USED FOR UNKNOWN INDICATION
     Route: 065
  5. RISPERIDONE [Suspect]
     Indication: DRUG ABUSE
     Route: 065
  6. RISPERIDONE [Suspect]
     Indication: PRODUCT USED FOR UNKNOWN INDICATION
     Route: 065
  7. HALOPERIDOL [Suspect]
     Indication: DRUG ABUSE
     Route: 065
  8. HALOPERIDOL [Suspect]
     Indication: PRODUCT USED FOR UNKNOWN INDICATION
     Route: 065
  9. OFLOXACIN [Suspect]
     Indication: DRUG ABUSE
     Route: 065
  10. OFLOXACIN [Suspect]
     Indication: PRODUCT USED FOR UNKNOWN INDICATION
     Route: 065
  11. LEVAMISOLE HYDROCHLORIDE [Suspect]
     Indication: DRUG ABUSE
     Route: 065
  12. LEVAMISOLE HYDROCHLORIDE [Suspect]
     Indication: PRODUCT USED FOR UNKNOWN INDICATION
     Route: 065
  13. IBUPROFEN [Suspect]
     Indication: DRUG ABUSE
     Route: 065
  14. IBUPROFEN [Suspect]
     Indication: PRODUCT USED FOR UNKNOWN INDICATION
     Route: 065
  15. AMBROXOL [Suspect]
     Indication: DRUG ABUSE
     Route: 065
  16. AMBROXOL [Suspect]
     Indication: PRODUCT USED FOR UNKNOWN INDICATION
     Route: 065
  17. PIPAMPERONE [Suspect]
     Indication: DRUG ABUSE
     Route: 065
  18. PIPAMPERONE [Suspect]
     Indication: PRODUCT USED FOR UNKNOWN INDICATION
     Route: 065
  19. NOSCAPINE [Suspect]
     Indication: DRUG ABUSE
     Route: 065
  20. NOSCAPINE [Suspect]
     Indication: PRODUCT USED FOR UNKNOWN INDICATION
     Route: 065
  21. AMPHETAMINE [Suspect]
     Indication: DRUG ABUSE
     Route: 065
  22. AMPHETAMINE [Suspect]
     Indication: PRODUCT USED FOR UNKNOWN INDICATION
     Route: 065
  23. METHAMPHETAMINE [Suspect]
     Indication: DRUG ABUSE
     Route: 065
  24. METHAMPHETAMINE [Suspect]
     Indication: PRODUCT USED FOR UNKNOWN INDICATION
     Route: 065
  25. METHADONE [Suspect]
     Indication: DRUG ABUSE
     Route: 065
  26. METHADONE [Suspect]
     Indication: PRODUCT USED FOR UNKNOWN INDICATION
     Route: 065
  27. HYDROMORPHONE [Suspect]
     Indication: DRUG ABUSE
     Route: 065
  28. HYDROMORPHONE [Suspect]
     Indication: PRODUCT USED FOR UNKNOWN INDICATION
     Route: 065
  29. OXYCODONE [Suspect]
     Indication: DRUG ABUSE
     Route: 065
  30. OXYCODONE [Suspect]
     Indication: PRODUCT USED FOR UNKNOWN INDICATION
     Route: 065
  31. TILIDINE [Suspect]
     Indication: DRUG ABUSE
     Route: 065
  32. TILIDINE [Suspect]
     Indication: PRODUCT USED FOR UNKNOWN INDICATION
     Route: 065
  33. KETAMINE [Suspect]
     Indication: DRUG ABUSE
     Route: 065
  34. KETAMINE [Suspect]
     Indication: PRODUCT USED FOR UNKNOWN INDICATION
     Route: 065
  35. CATHINE [Suspect]
     Indication: DRUG ABUSE
     Route: 065
  36. CATHINE [Suspect]
     Indication: PRODUCT USED FOR UNKNOWN INDICATION
     Route: 065
  37. COCAINE [Suspect]
     Indication: DRUG ABUSE
     Route: 065
  38. COCAINE [Suspect]
     Indication: PRODUCT USED FOR UNKNOWN INDICATION
     Route: 065
  39. PARACETAMOL [Suspect]
     Indication: DRUG ABUSE
     Route: 065
  40. PARACETAMOL [Suspect]
     Indication: PRODUCT USED FOR UNKNOWN INDICATION
     Route: 065
  41. PHENACETIN [Suspect]
     Indication: DRUG ABUSE
     Route: 065
  42. PHENACETIN [Suspect]
     Indication: PRODUCT USED FOR UNKNOWN INDICATION
     Route: 065
  43. HYDROXYZINE [Suspect]
     Indication: DRUG ABUSE
     Route: 065
  44. HYDROXYZINE [Suspect]
     Indication: PRODUCT USED FOR UNKNOWN INDICATION
     Route: 065
  45. METOCLOPRAMIDE [Suspect]
     Indication: DRUG ABUSE
     Route: 065
  46. METOCLOPRAMIDE [Suspect]
     Indication: PRODUCT USED FOR UNKNOWN INDICATION
     Route: 065
  47. LIDOCAINE [Suspect]
     Indication: DRUG ABUSE
     Route: 065
  48. LIDOCAINE [Suspect]
     Indication: PRODUCT USED FOR UNKNOWN INDICATION
     Route: 065
  49. METOPROLOL [Suspect]
     Indication: DRUG ABUSE
     Route: 065
  50. METOPROLOL [Suspect]
     Indication: PRODUCT USED FOR UNKNOWN INDICATION
     Route: 065
  51. DICLOFENAC [Suspect]
     Indication: DRUG ABUSE
     Route: 065
  52. DICLOFENAC [Suspect]
     Indication: PRODUCT USED FOR UNKNOWN INDICATION
     Route: 065
  53. DIPHENHYDRAMINE [Suspect]
     Indication: DRUG ABUSE
     Route: 065
  54. DIPHENHYDRAMINE [Suspect]
     Indication: PRODUCT USED FOR UNKNOWN INDICATION
     Route: 065
  55. DIAZEPAM [Suspect]
     Indication: DRUG ABUSE
     Route: 065
  56. DIAZEPAM [Suspect]
     Indication: PRODUCT USED FOR UNKNOWN INDICATION
     Route: 065
  57. DOXEPIN [Suspect]
     Indication: DRUG ABUSE
     Route: 065
  58. DOXEPIN [Suspect]
     Indication: PRODUCT USED FOR UNKNOWN INDICATION
     Route: 065
  59. NORDAZEPAM [Suspect]
     Indication: DRUG ABUSE
     Route: 065
  60. NORDAZEPAM [Suspect]
     Indication: PRODUCT USED FOR UNKNOWN INDICATION
     Route: 065
  61. TRIMETHOPRIM [Suspect]
     Indication: DRUG ABUSE
     Route: 065
  62. TRIMETHOPRIM [Suspect]
     Indication: PRODUCT USED FOR UNKNOWN INDICATION
     Route: 065
  63. CITALOPRAM [Suspect]
     Indication: DRUG ABUSE
     Route: 065
  64. CITALOPRAM [Suspect]
     Indication: PRODUCT USED FOR UNKNOWN INDICATION
     Route: 065
  65. MIRTAZAPINE [Suspect]
     Indication: DRUG ABUSE
     Route: 065
  66. MIRTAZAPINE [Suspect]
     Indication: PRODUCT USED FOR UNKNOWN INDICATION
     Route: 065
  67. NORTRIPTYLINE [Suspect]
     Indication: DRUG ABUSE
     Route: 065
  68. NORTRIPTYLINE [Suspect]
     Indication: PRODUCT USED FOR UNKNOWN INDICATION
     Route: 065
  69. CARBAMAZEPINE [Suspect]
     Indication: DRUG ABUSE
     Route: 065
  70. CARBAMAZEPINE [Suspect]
     Indication: PRODUCT USED FOR UNKNOWN INDICATION
     Route: 065
  71. PHENAZONE [Suspect]
     Indication: DRUG ABUSE
     Route: 065
  72. PHENAZONE [Suspect]
     Indication: PRODUCT USED FOR UNKNOWN INDICATION
     Route: 065
  73. DOXYLAMINE [Suspect]
     Indication: DRUG ABUSE
     Route: 065
  74. DOXYLAMINE [Suspect]
     Indication: PRODUCT USED FOR UNKNOWN INDICATION
     Route: 065
  75. BETAZOLE [Suspect]
     Indication: DRUG ABUSE
     Route: 065
  76. BETAZOLE [Suspect]
     Indication: PRODUCT USED FOR UNKNOWN INDICATION
     Route: 065
  77. ONDANSETRON [Suspect]
     Indication: DRUG ABUSE
     Route: 065
  78. ONDANSETRON [Suspect]
     Indication: PRODUCT USED FOR UNKNOWN INDICATION
     Route: 065
  79. QUETIAPINE [Suspect]
     Indication: DRUG ABUSE
     Route: 065
  80. QUETIAPINE [Suspect]
     Indication: PRODUCT USED FOR UNKNOWN INDICATION
     Route: 065
  81. TRIMIPRAMINE [Suspect]
     Indication: DRUG ABUSE
     Route: 065
  82. TRIMIPRAMINE [Suspect]
     Indication: PRODUCT USED FOR UNKNOWN INDICATION
     Route: 065
  83. ZOLPIDEM [Suspect]
     Indication: DRUG ABUSE
     Route: 065
  84. ZOLPIDEM [Suspect]
     Indication: PRODUCT USED FOR UNKNOWN INDICATION
     Route: 065
  85. AMITRIPTYLINE [Suspect]
     Indication: DRUG ABUSE
     Route: 065
  86. AMITRIPTYLINE [Suspect]
     Indication: PRODUCT USED FOR UNKNOWN INDICATION
     Route: 065
  87. CIPROFLOXACIN [Suspect]
     Indication: DRUG ABUSE
     Route: 065
  88. CIPROFLOXACIN [Suspect]
     Indication: PRODUCT USED FOR UNKNOWN INDICATION
     Route: 065
  89. PILOCARPINE [Suspect]
     Indication: DRUG ABUSE
     Route: 065
  90. PILOCARPINE [Suspect]
     Indication: PRODUCT USED FOR UNKNOWN INDICATION
     Route: 065
  91. PROMETHAZINE [Suspect]
     Indication: DRUG ABUSE
     Route: 065
  92. PROMETHAZINE [Suspect]
     Indication: PRODUCT USED FOR UNKNOWN INDICATION
     Route: 065
  93. ZOPICLONE [Suspect]
     Indication: DRUG ABUSE
     Route: 065
  94. ZOPICLONE [Suspect]
     Indication: PRODUCT USED FOR UNKNOWN INDICATION
     Route: 065
  95. CLARITHROMYCIN [Suspect]
     Indication: DRUG ABUSE
     Route: 065
  96. CLARITHROMYCIN [Suspect]
     Indication: PRODUCT USED FOR UNKNOWN INDICATION
     Route: 065
  97. EMEPRONIUM [Suspect]
     Indication: DRUG ABUSE
     Route: 065
  98. EMEPRONIUM [Suspect]
     Indication: PRODUCT USED FOR UNKNOWN INDICATION
     Route: 065
  99. MELPERONE [Suspect]
     Indication: DRUG ABUSE
     Route: 065
  100. MELPERONE [Suspect]
     Indication: PRODUCT USED FOR UNKNOWN INDICATION
     Route: 065
  101. MIDAZOLAM [Suspect]
     Indication: DRUG ABUSE
     Route: 065
  102. MIDAZOLAM [Suspect]
     Indication: PRODUCT USED FOR UNKNOWN INDICATION
     Route: 065
  103. PAPAVERINE [Suspect]
     Indication: DRUG ABUSE
     Route: 065
  104. PAPAVERINE [Suspect]
     Indication: PRODUCT USED FOR UNKNOWN INDICATION
     Route: 065
  105. PRILOCAINE [Suspect]
     Indication: DRUG ABUSE
     Route: 065
  106. PRILOCAINE [Suspect]
     Indication: PRODUCT USED FOR UNKNOWN INDICATION
     Route: 065
  107. PROPYPHENAZONE [Suspect]
     Indication: DRUG ABUSE
     Route: 065
  108. PROPYPHENAZONE [Suspect]
     Indication: PRODUCT USED FOR UNKNOWN INDICATION
     Route: 065
  109. VERAPAMIL [Suspect]
     Indication: DRUG ABUSE
     Route: 065
  110. VERAPAMIL [Suspect]
     Indication: PRODUCT USED FOR UNKNOWN INDICATION
     Route: 065
  111. AMISULPRIDE [Suspect]
     Indication: DRUG ABUSE
     Route: 065
  112. AMISULPRIDE [Suspect]
     Indication: PRODUCT USED FOR UNKNOWN INDICATION
     Route: 065
  113. CLOZAPINE [Suspect]
     Indication: DRUG ABUSE
     Route: 065
  114. CLOZAPINE [Suspect]
     Indication: PRODUCT USED FOR UNKNOWN INDICATION
     Route: 065
  115. DENATONIUM BENZOATE [Suspect]
     Indication: DRUG ABUSE
     Route: 065
  116. DENATONIUM BENZOATE [Suspect]
     Indication: PRODUCT USED FOR UNKNOWN INDICATION
     Route: 065
  117. FLUCONAZOLE [Suspect]
     Indication: DRUG ABUSE
     Route: 065
  118. FLUCONAZOLE [Suspect]
     Indication: PRODUCT USED FOR UNKNOWN INDICATION
     Route: 065
  119. METHADONE [Suspect]
     Indication: DRUG ABUSE
     Route: 065
  120. METHADONE [Suspect]
     Indication: PRODUCT USED FOR UNKNOWN INDICATION
     Route: 065
  121. IMIPRAMINE [Suspect]
     Indication: DRUG ABUSE
     Route: 065
  122. IMIPRAMINE [Suspect]
     Indication: PRODUCT USED FOR UNKNOWN INDICATION
     Route: 065
  123. SULFADIAZINE [Suspect]
     Indication: DRUG ABUSE
     Route: 065
  124. SULFADIAZINE [Suspect]
     Indication: PRODUCT USED FOR UNKNOWN INDICATION
     Route: 065
  125. TORASEMIDE [Suspect]
     Indication: DRUG ABUSE
     Route: 065
  126. TORASEMIDE [Suspect]
     Indication: PRODUCT USED FOR UNKNOWN INDICATION
     Route: 065
  127. VENLAFAXINE [Suspect]
     Indication: DRUG ABUSE
     Route: 065
  128. VENLAFAXINE [Suspect]
     Indication: PRODUCT USED FOR UNKNOWN INDICATION
     Route: 065
  129. ATROPINE [Suspect]
     Indication: DRUG ABUSE
     Route: 065
  130. ATROPINE [Suspect]
     Indication: PRODUCT USED FOR UNKNOWN INDICATION
     Route: 065
  131. BISOPROLOL [Suspect]
     Indication: DRUG ABUSE
     Route: 065
  132. BISOPROLOL [Suspect]
     Indication: PRODUCT USED FOR UNKNOWN INDICATION
     Route: 065
  133. BROMAZEPAM [Suspect]
     Indication: DRUG ABUSE
     Route: 065
  134. BROMAZEPAM [Suspect]
     Indication: PRODUCT USED FOR UNKNOWN INDICATION
     Route: 065
  135. CANRENONE [Suspect]
     Indication: DRUG ABUSE
     Route: 065
  136. CANRENONE [Suspect]
     Indication: PRODUCT USED FOR UNKNOWN INDICATION
     Route: 065
  137. DIHYDROCODEINE [Suspect]
     Indication: DRUG ABUSE
     Route: 065
  138. DIHYDROCODEINE [Suspect]
     Indication: PRODUCT USED FOR UNKNOWN INDICATION
     Route: 065
  139. DYCLONINE [Suspect]
     Indication: DRUG ABUSE
     Route: 065
  140. DYCLONINE [Suspect]
     Indication: PRODUCT USED FOR UNKNOWN INDICATION
     Route: 065
  141. HYOSCYAMINE [Suspect]
     Indication: DRUG ABUSE
     Route: 065
  142. HYOSCYAMINE [Suspect]
     Indication: PRODUCT USED FOR UNKNOWN INDICATION
     Route: 065
  143. LEVOMEPROMAZINE [Suspect]
     Indication: DRUG ABUSE
     Route: 065
  144. LEVOMEPROMAZINE [Suspect]
     Indication: PRODUCT USED FOR UNKNOWN INDICATION
     Route: 065
  145. MEMANTINE [Suspect]
     Indication: DRUG ABUSE
     Route: 065
  146. MEMANTINE [Suspect]
     Indication: PRODUCT USED FOR UNKNOWN INDICATION
     Route: 065
  147. PETHIDINE [Suspect]
     Indication: DRUG ABUSE
     Route: 065
  148. PETHIDINE [Suspect]
     Indication: PRODUCT USED FOR UNKNOWN INDICATION
     Route: 065
  149. OMEPRAZOLE [Suspect]
     Indication: DRUG ABUSE
     Route: 065
  150. OMEPRAZOLE [Suspect]
     Indication: PRODUCT USED FOR UNKNOWN INDICATION
     Route: 065
  151. HEROIN [Suspect]
     Indication: DRUG ABUSE
     Route: 065
  152. HEROIN [Suspect]
     Indication: PRODUCT USED FOR UNKNOWN INDICATION
     Route: 065
  153. SULFAMETHOXAZOLE [Suspect]
     Indication: DRUG ABUSE
     Route: 065
  154. SULFAMETHOXAZOLE [Suspect]
     Indication: PRODUCT USED FOR UNKNOWN INDICATION
     Route: 065
  155. TETRAZEPAM [Suspect]
     Indication: DRUG ABUSE
     Route: 065
  156. TETRAZEPAM [Suspect]
     Indication: PRODUCT USED FOR UNKNOWN INDICATION
     Route: 065
  157. TIAPRIDE [Suspect]
     Indication: DRUG ABUSE
     Route: 065
  158. TIAPRIDE [Suspect]
     Indication: PRODUCT USED FOR UNKNOWN INDICATION
     Route: 065
  159. TRANYLCYPROMINE [Suspect]
     Indication: DRUG ABUSE
     Route: 065
  160. TRANYLCYPROMINE [Suspect]
     Indication: PRODUCT USED FOR UNKNOWN INDICATION
     Route: 065
  161. VALPROMIDE [Suspect]
     Indication: DRUG ABUSE
     Route: 065
  162. VALPROMIDE [Suspect]
     Indication: PRODUCT USED FOR UNKNOWN INDICATION
     Route: 065
  163. METAMIZOL [Suspect]
     Indication: DRUG ABUSE
     Route: 065
  164. METAMIZOL [Suspect]
     Indication: PRODUCT USED FOR UNKNOWN INDICATION
     Route: 065
  165. ACETYL SALICYLIC ACID [Suspect]
     Indication: DRUG ABUSE
     Route: 065
  166. ACETYL SALICYLIC ACID [Suspect]
     Indication: PRODUCT USED FOR UNKNOWN INDICATION
     Route: 065
  167. PANTOPRAZOL [Suspect]
     Indication: DRUG ABUSE
     Route: 065
  168. PANTOPRAZOL [Suspect]
     Indication: PRODUCT USED FOR UNKNOWN INDICATION
     Route: 065
  169. CODEINE [Suspect]
     Indication: DRUG ABUSE
     Route: 065
  170. CODEINE [Suspect]
     Indication: PRODUCT USED FOR UNKNOWN INDICATION
     Route: 065
  171. PHENPROCOUMON [Suspect]
     Indication: DRUG ABUSE
     Route: 065
  172. PHENPROCOUMON [Suspect]
     Indication: PRODUCT USED FOR UNKNOWN INDICATION
     Route: 065
  173. FUROSEMIDE [Suspect]
     Indication: DRUG ABUSE
     Route: 065
  174. FUROSEMIDE [Suspect]
     Indication: PRODUCT USED FOR UNKNOWN INDICATION
     Route: 065
  175. SIMVASTATIN [Suspect]
     Indication: DRUG ABUSE
     Route: 065
  176. SIMVASTATIN [Suspect]
     Indication: PRODUCT USED FOR UNKNOWN INDICATION
     Route: 065
  177. AMLODIPINE [Suspect]
     Indication: DRUG ABUSE
     Route: 065
  178. AMLODIPINE [Suspect]
     Indication: PRODUCT USED FOR UNKNOWN INDICATION
     Route: 065
  179. MORPHINE [Suspect]
     Indication: DRUG ABUSE
     Route: 065
  180. MORPHINE [Suspect]
     Indication: PRODUCT USED FOR UNKNOWN INDICATION
     Route: 065
  181. INSULIN [Suspect]
     Indication: DRUG ABUSE
     Route: 065
  182. INSULIN [Suspect]
     Indication: PRODUCT USED FOR UNKNOWN INDICATION
     Route: 065
  183. PHENOBARBITAL [Suspect]
     Indication: DRUG ABUSE
     Route: 065
  184. PHENOBARBITAL [Suspect]
     Indication: PRODUCT USED FOR UNKNOWN INDICATION
     Route: 065
  185. ALLOPURINOL [Suspect]
     Indication: DRUG ABUSE
     Route: 065
  186. ALLOPURINOL [Suspect]
     Indication: PRODUCT USED FOR UNKNOWN INDICATION
     Route: 065
  187. AMIODARONE [Suspect]
     Indication: DRUG ABUSE
     Route: 065
  188. AMIODARONE [Suspect]
     Indication: PRODUCT USED FOR UNKNOWN INDICATION
     Route: 065
  189. CLEMASTINE [Suspect]
     Indication: DRUG ABUSE
     Route: 065
  190. CLEMASTINE [Suspect]
     Indication: PRODUCT USED FOR UNKNOWN INDICATION
     Route: 065
  191. ENOXAPARIN [Suspect]
     Indication: DRUG ABUSE
     Route: 065
  192. ENOXAPARIN [Suspect]
     Indication: PRODUCT USED FOR UNKNOWN INDICATION
     Route: 065
  193. FLUNITRAZEPAM [Suspect]
     Indication: DRUG ABUSE
     Route: 065
  194. FLUNITRAZEPAM [Suspect]
     Indication: PRODUCT USED FOR UNKNOWN INDICATION
     Route: 065
  195. LORAZEPAM [Suspect]
     Indication: DRUG ABUSE
     Route: 065
  196. LORAZEPAM [Suspect]
     Indication: PRODUCT USED FOR UNKNOWN INDICATION
     Route: 065
  197. L - THYROXIN [Suspect]
     Indication: DRUG ABUSE
     Route: 065
  198. THYROXIN [Suspect]
     Indication: PRODUCT USED FOR UNKNOWN INDICATION
     Route: 065
  199. NALOXONE [Suspect]
     Indication: DRUG ABUSE
     Route: 065
  200. NALOXONE [Suspect]
     Indication: PRODUCT USED FOR UNKNOWN INDICATION
     Route: 065
  201. SALBUTAMOL [Suspect]
     Indication: DRUG ABUSE
     Route: 065
  202. SALBUTAMOL [Suspect]
     Indication: PRODUCT USED FOR UNKNOWN INDICATION
     Route: 065
  203. AMITRIPTYLINOXIDE [Suspect]
     Indication: DRUG ABUSE
     Route: 065
  204. AMITRIPTYLINOXIDE [Suspect]
     Indication: PRODUCT USED FOR UNKNOWN INDICATION
     Route: 065
  205. CLINDAMYCIN [Suspect]
     Indication: DRUG ABUSE
     Route: 065
  206. CLINDAMYCIN [Suspect]
     Indication: PRODUCT USED FOR UNKNOWN INDICATION
     Route: 065
  207. NORDIAZEPAM [Suspect]
     Indication: DRUG ABUSE
     Route: 065
  208. NORDIAZEPAM [Suspect]
     Indication: PRODUCT USED FOR UNKNOWN INDICATION
     Route: 065
  209. OPIPRAMOL [Suspect]
     Indication: DRUG ABUSE
     Route: 065
  210. OPIPRAMOL [Suspect]
     Indication: PRODUCT USED FOR UNKNOWN INDICATION
     Route: 065
  211. PRIMIDONE [Suspect]
     Indication: DRUG ABUSE
     Route: 065
  212. PRIMIDONE [Suspect]
     Indication: PRODUCT USED FOR UNKNOWN INDICATION
     Route: 065
  213. PYRIDOXINE [Suspect]
     Indication: DRUG ABUSE
     Route: 065
  214. PYRIDOXINE [Suspect]
     Indication: PRODUCT USED FOR UNKNOWN INDICATION
     Route: 065
  215. TRIPELENNAMINE [Suspect]
     Indication: DRUG ABUSE
     Route: 065
  216. TRIPELENNAMINE [Suspect]
     Indication: PRODUCT USED FOR UNKNOWN INDICATION
     Route: 065
  217. LINEZOLID [Suspect]
     Indication: DRUG ABUSE
     Route: 065
  218. LINEZOLID [Suspect]
     Indication: PRODUCT USED FOR UNKNOWN INDICATION
     Route: 065
  219. METRONIDAZOLE [Suspect]
     Indication: DRUG ABUSE
     Route: 065
  220. METRONIDAZOLE [Suspect]
     Indication: PRODUCT USED FOR UNKNOWN INDICATION
     Route: 065
  221. BUPRENORPHINE [Suspect]
     Indication: DRUG ABUSE
     Route: 065
  222. BUPRENORPHINE [Suspect]
     Indication: PRODUCT USED FOR UNKNOWN INDICATION
     Route: 065
  223. MULTIPLE OTHER MEDICATIONS [Suspect]
     Indication: DRUG ABUSE
     Route: 065
  224. MULTIPLE OTHER MEDICATIONS [Suspect]
     Indication: PRODUCT USED FOR UNKNOWN INDICATION
     Route: 065
  225. MULTIPLE OTHER MEDICATIONS [Suspect]
     Indication: DRUG ABUSE
     Route: 065
  226. MULTIPLE OTHER MEDICATIONS [Suspect]
     Indication: PRODUCT USED FOR UNKNOWN INDICATION
     Route: 065
  227. MULTIPLE OTHER MEDICATIONS [Suspect]
     Indication: DRUG ABUSE
     Route: 065
  228. MULTIPLE OTHER MEDICATIONS [Suspect]
     Indication: PRODUCT USED FOR UNKNOWN INDICATION
     Route: 065

REACTIONS (9)
  - Surgery [Fatal]
  - Death [Fatal]
  - Substance abuse [Fatal]
  - Overdose [Fatal]
  - Haemorrhage [Fatal]
  - Completed suicide [Fatal]
  - Accident [Fatal]
  - Disease progression [Fatal]
  - Malaise [Fatal]
